FAERS Safety Report 10110868 (Version 1)
Quarter: 2014Q2

REPORT INFORMATION
  Report Type: Spontaneous
  Country: BR (occurrence: BR)
  Receive Date: 20140425
  Receipt Date: 20140425
  Transmission Date: 20141212
  Serious: Yes (Hospitalization, Disabling, Other)
  Sender: FDA-Public Use
  Company Number: BR-ASTRAZENECA-2014SE26783

PATIENT
  Age: 83 Year
  Sex: Female

DRUGS (6)
  1. BRILINTA [Suspect]
     Route: 048
     Dates: start: 201304
  2. INSULIN [Concomitant]
     Route: 058
  3. ASPIRINA PREVENT [Concomitant]
     Route: 048
  4. ATORVASTATIN CALCIUM [Concomitant]
     Route: 048
  5. ESCITALOPRAM OXALATE [Concomitant]
     Route: 048
  6. NORIPURUM [Concomitant]
     Indication: ANAEMIA
     Route: 042
     Dates: start: 2013, end: 2013

REACTIONS (5)
  - Anaemia [Recovered/Resolved]
  - Hemiplegia [Not Recovered/Not Resolved]
  - Dysphagia [Not Recovered/Not Resolved]
  - Haemorrhagic stroke [Recovered/Resolved with Sequelae]
  - Pain [Not Recovered/Not Resolved]
